FAERS Safety Report 6781807-2 (Version None)
Quarter: 2010Q2

REPORT INFORMATION
  Report Type: 
  Country: None (occurrence: None)
  Receive Date: 20100621
  Receipt Date: 20100610
  Transmission Date: 20101027
  Serious: Yes (Other)
  Sender: FDA-Public Use
  Company Number: FI-JNJFOC-20100510344

PATIENT
  Age: 47 Year
  Sex: Female
  Weight: 69.3 kg

DRUGS (7)
  1. SIMPONI [Suspect]
     Indication: RHEUMATOID ARTHRITIS
     Route: 058
  2. TREXAN METHOTREXATE [Concomitant]
     Route: 048
  3. FOLIC ACID [Concomitant]
     Route: 048
  4. PANADOL [Concomitant]
     Route: 048
  5. PANACOD [Concomitant]
     Route: 048
  6. MICARDIS [Concomitant]
     Route: 048
  7. CYMBALTA [Concomitant]
     Route: 048

REACTIONS (1)
  - HERPES ZOSTER [None]
